FAERS Safety Report 13916528 (Version 1)
Quarter: 2017Q3

REPORT INFORMATION
  Report Type: Spontaneous
  Country: US (occurrence: US)
  Receive Date: 20170829
  Receipt Date: 20170829
  Transmission Date: 20171127
  Serious: No
  Sender: FDA-Public Use
  Company Number: US-MYLANLABS-2017M1039333

PATIENT

DRUGS (1)
  1. TEMAZEPAM MYLAN [Suspect]
     Active Substance: TEMAZEPAM
     Indication: PRODUCT USED FOR UNKNOWN INDICATION
     Dosage: UNK

REACTIONS (3)
  - Sleep disorder [Recovered/Resolved]
  - Product substitution issue [None]
  - Headache [Recovered/Resolved]
